APPROVED DRUG PRODUCT: OLANZAPINE
Active Ingredient: OLANZAPINE
Strength: 15MG
Dosage Form/Route: TABLET;ORAL
Application: A076866 | Product #005
Applicant: NATCO PHARMA LTD
Approved: Apr 23, 2012 | RLD: No | RS: No | Type: DISCN